FAERS Safety Report 6155178-9 (Version None)
Quarter: 2009Q2

REPORT INFORMATION
  Report Type: 
  Country: None (occurrence: None)
  Receive Date: 20090415
  Receipt Date: 20070702
  Transmission Date: 20091009
  Serious: Yes (Other)
  Sender: FDA-Public Use
  Company Number: US-ASTRAZENECA-2006UW23515

PATIENT
  Age: 14500 Day
  Sex: Male
  Weight: 106.1 kg

DRUGS (21)
  1. SEROQUEL [Suspect]
     Indication: BIPOLAR DISORDER
     Route: 048
  2. SEROQUEL [Suspect]
     Indication: DEPRESSION
     Route: 048
  3. SEROQUEL [Suspect]
     Indication: SLEEP APNOEA SYNDROME
     Route: 048
  4. SEROQUEL [Suspect]
     Indication: ANXIETY
     Route: 048
  5. SEROQUEL [Suspect]
     Dosage: 25 MG TO 900 MG
     Route: 048
     Dates: start: 20040614
  6. SEROQUEL [Suspect]
     Dosage: 25 MG TO 900 MG
     Route: 048
     Dates: start: 20040614
  7. SEROQUEL [Suspect]
     Dosage: 25 MG TO 900 MG
     Route: 048
     Dates: start: 20040614
  8. SEROQUEL [Suspect]
     Dosage: 25 MG TO 900 MG
     Route: 048
     Dates: start: 20040614
  9. ZYPREXA [Concomitant]
  10. LITHIUM CARBONATE [Concomitant]
  11. DEPAKOTE [Concomitant]
  12. NEFAZODONE HCL [Concomitant]
  13. ACTOS [Concomitant]
  14. GLUCOVANCE [Concomitant]
  15. SERZONE [Concomitant]
  16. ATIVAN [Concomitant]
  17. WELLBUTRIN [Concomitant]
  18. ZOLOFT [Concomitant]
  19. VICODIN [Concomitant]
  20. RISPERDAL [Concomitant]
  21. PROZAC [Concomitant]

REACTIONS (15)
  - ABDOMINAL DISTENSION [None]
  - ABDOMINAL PAIN [None]
  - ANXIETY [None]
  - BACK PAIN [None]
  - DIABETES MELLITUS [None]
  - DYSPNOEA [None]
  - FEELING JITTERY [None]
  - HYPERTENSION [None]
  - LIPOMA [None]
  - MUSCULOSKELETAL PAIN [None]
  - PAIN IN EXTREMITY [None]
  - PHARYNGEAL OEDEMA [None]
  - SUICIDAL IDEATION [None]
  - TREMOR [None]
  - TYMPANIC MEMBRANE PERFORATION [None]
